FAERS Safety Report 8608882-4 (Version None)
Quarter: 2012Q3

REPORT INFORMATION
  Report Type: 
  Country: None (occurrence: None)
  Receive Date: 20120821
  Receipt Date: 20120810
  Transmission Date: 20120928
  Serious: Yes (Hospitalization)
  Sender: FDA-Public Use
  Company Number: DE-TEVA-340260GER

PATIENT
  Sex: Female
  Weight: 72 kg

DRUGS (8)
  1. FILGRASTIM [Concomitant]
     Dates: start: 20120315, end: 20120513
  2. AVASTIN [Suspect]
     Indication: BREAST CANCER
     Route: 042
     Dates: start: 20120313, end: 20120522
  3. RANITIDINE [Concomitant]
     Dates: start: 20120313, end: 20120510
  4. GRANISETRON [Concomitant]
     Dates: start: 20120313, end: 20120510
  5. DOXORUBICIN HCL [Suspect]
     Indication: BREAST CANCER
     Route: 042
     Dates: start: 20120313, end: 20120522
  6. DEXAMETHASONE [Concomitant]
     Dates: start: 20120313, end: 20120510
  7. CLEMASTINE FUMARATE [Concomitant]
     Dates: start: 20120313, end: 20120510
  8. PACLITAXEL [Suspect]
     Indication: BREAST CANCER
     Route: 042
     Dates: start: 20120313, end: 20120522

REACTIONS (1)
  - PNEUMONITIS [None]
